FAERS Safety Report 24141526 (Version 1)
Quarter: 2024Q3

REPORT INFORMATION
  Report Type: Spontaneous
  Country: DE (occurrence: DE)
  Receive Date: 20240726
  Receipt Date: 20240726
  Transmission Date: 20241016
  Serious: Yes (Other)
  Sender: RANBAXY
  Company Number: DE-SUN PHARMACEUTICAL INDUSTRIES LTD-2024RR-458989

PATIENT
  Age: 66 Year
  Sex: Male
  Weight: 74 kg

DRUGS (1)
  1. PREGABALIN [Suspect]
     Active Substance: PREGABALIN
     Indication: Neuralgia
     Dosage: 25MG: INCREASED EVERY THREE DAYS FROM 0-0-1- TO 2-0-3
     Route: 048
     Dates: start: 20240413, end: 20240425

REACTIONS (4)
  - Erectile dysfunction [Recovering/Resolving]
  - Visual impairment [Recovering/Resolving]
  - Diplopia [Recovering/Resolving]
  - Headache [Recovering/Resolving]

NARRATIVE: CASE EVENT DATE: 20240418
